FAERS Safety Report 25529556 (Version 1)
Quarter: 2025Q3

REPORT INFORMATION
  Report Type: Spontaneous
  Country: US (occurrence: None)
  Receive Date: 20250707
  Receipt Date: 20250707
  Transmission Date: 20251020
  Serious: Yes (Death)
  Sender: FDA-CTU
  Company Number: None

PATIENT
  Age: 34 Month
  Sex: Male

DRUGS (13)
  1. SIROLIMUS [Suspect]
     Active Substance: SIROLIMUS
     Dates: start: 20250516, end: 20250626
  2. albuterol 2.5 mg/3ml sol [Concomitant]
  3. aspirin 81 mg chewable tab [Concomitant]
  4. Budesonide 0.5 mg/2 ml sol [Concomitant]
  5. Calcium carbonate 500 mg chewable tab [Concomitant]
  6. Famotidine 40 mg/5 ml susp [Concomitant]
  7. furosemide 10 mg/ml sol [Concomitant]
  8. Metronidazole 50mg/ml sol [Concomitant]
  9. Phos-NaK packet [Concomitant]
  10. Prednisolone 15mg/5ml sol [Concomitant]
  11. rifaximin 20 mg/ml sol [Concomitant]
  12. sulfasalazine 100 mg/ml susp [Concomitant]
  13. TACROLIMUS [Concomitant]
     Active Substance: TACROLIMUS

REACTIONS (4)
  - Hyponatraemia [None]
  - Feeding disorder [None]
  - Feeding disorder [None]
  - Cardio-respiratory arrest [None]

NARRATIVE: CASE EVENT DATE: 20250626
